FAERS Safety Report 14666422 (Version 2)
Quarter: 2018Q2

REPORT INFORMATION
  Report Type: Spontaneous
  Country: US (occurrence: US)
  Receive Date: 20180321
  Receipt Date: 20180404
  Transmission Date: 20180711
  Serious: Yes (Hospitalization)
  Sender: FDA-Public Use
  Company Number: US-INSYS THERAPEUTICS, INC-INS201803-000094

PATIENT
  Sex: Male

DRUGS (5)
  1. SUBSYS [Suspect]
     Active Substance: FENTANYL
     Indication: BREAKTHROUGH PAIN
     Route: 060
     Dates: start: 20141029
  2. SUBSYS [Suspect]
     Active Substance: FENTANYL
     Indication: HIV INFECTION
     Route: 060
  3. SUBSYS [Suspect]
     Active Substance: FENTANYL
     Indication: POLYNEUROPATHY
     Route: 060
  4. MS CONTIN [Concomitant]
     Active Substance: MORPHINE SULFATE
  5. MORPHINE SULFATE IMMEDIATE RELEASE [Concomitant]
     Active Substance: MORPHINE SULFATE

REACTIONS (3)
  - Device malfunction [Unknown]
  - Product quality issue [Unknown]
  - Infection [Unknown]
